FAERS Safety Report 9276025 (Version 1)
Quarter: 2013Q2

REPORT INFORMATION
  Report Type: Spontaneous
  Country: DE (occurrence: DE)
  Receive Date: 20130507
  Receipt Date: 20130507
  Transmission Date: 20140414
  Serious: Yes (Hospitalization)
  Sender: FDA-Public Use
  Company Number: DE-AMGEN-DEUSP2013030754

PATIENT
  Sex: Male

DRUGS (8)
  1. PEGFILGRASTIM [Suspect]
     Indication: B-CELL LYMPHOMA
     Dosage: 6 MG, 4 IN 48 D
     Route: 058
     Dates: start: 20121129, end: 20130115
  2. RITUXIMAB [Suspect]
     Indication: B-CELL LYMPHOMA
     Dosage: 675 MG, 7 IN 53 D
     Route: 042
     Dates: start: 20121120, end: 20130111
  3. VINCRISTINE [Suspect]
     Indication: B-CELL LYMPHOMA
     Dosage: 3.58 MG, 4 IN 47 D
     Route: 042
     Dates: start: 20121127, end: 20130112
  4. PREDNISONE [Suspect]
     Indication: B-CELL LYMPHOMA
     Dosage: 100 MG, 37 IN 63 D
     Route: 048
     Dates: start: 20121115, end: 20130116
  5. CYCLOPHOSPHAMIDE [Suspect]
     Indication: B-CELL LYMPHOMA
     Dosage: 1350 MG, 4 IN 48 D
     Route: 042
     Dates: start: 20121126, end: 20130112
  6. DOXORUBICIN [Suspect]
     Indication: B-CELL LYMPHOMA
     Dosage: 90 MG, 4 IN 48 D
     Route: 042
     Dates: start: 20121126, end: 20130112
  7. VORICONAZOLE [Concomitant]
     Dosage: UNK
  8. DIGITOXIN [Concomitant]
     Dosage: UNK

REACTIONS (1)
  - Facial paresis [Unknown]
